FAERS Safety Report 5132616-1 (Version None)
Quarter: 2006Q4

REPORT INFORMATION
  Report Type: 
  Country: None (occurrence: None)
  Receive Date: 20061017
  Receipt Date: 20061003
  Transmission Date: 20070319
  Serious: Yes (Hospitalization)
  Sender: FDA-Public Use
  Company Number: FABR-11688

PATIENT
  Age: 53 Year
  Sex: Male
  Weight: 56 kg

DRUGS (4)
  1. FABRAZYME [Suspect]
     Indication: FABRY'S DISEASE
     Dosage: 50 MG Q2WKS IV
     Route: 042
     Dates: start: 20040617
  2. ALFACALCIDOL [Concomitant]
  3. ESTAZOLAM [Concomitant]
  4. ASPIRIN [Concomitant]

REACTIONS (1)
  - EPILEPSY [None]
